FAERS Safety Report 9041007 (Version 1)
Quarter: 2013Q1

REPORT INFORMATION
  Report Type: Spontaneous
  Country: US (occurrence: None)
  Receive Date: 20130123
  Receipt Date: 20130123
  Transmission Date: 20140127
  Serious: No
  Sender: FDA-Public Use
  Company Number: None

PATIENT
  Age: 83 Year
  Sex: Female
  Weight: 62.6 kg

DRUGS (1)
  1. ZETIA [Suspect]
     Indication: BLOOD CHOLESTEROL INCREASED
     Dosage: 10MG DAILY  DAILY  MOUTH
     Route: 048
     Dates: start: 201210, end: 20121223

REACTIONS (7)
  - Fatigue [None]
  - Back pain [None]
  - Nasopharyngitis [None]
  - Musculoskeletal stiffness [None]
  - Jaundice [None]
  - Hypoaesthesia [None]
  - Chills [None]
